FAERS Safety Report 14175912 (Version 1)
Quarter: 2017Q4

REPORT INFORMATION
  Report Type: Spontaneous
  Country: US (occurrence: None)
  Receive Date: 20171109
  Receipt Date: 20171109
  Transmission Date: 20180321
  Serious: Yes (Death)
  Sender: FDA-Public Use
  Company Number: None

PATIENT
  Age: 65 Year
  Sex: Female

DRUGS (1)
  1. STELARA [Suspect]
     Active Substance: USTEKINUMAB
     Indication: MALAISE
     Dosage: EVERY 90 DAYS
     Dates: start: 20170718, end: 20171004

REACTIONS (1)
  - Death [None]

NARRATIVE: CASE EVENT DATE: 20170731
